FAERS Safety Report 21487086 (Version 1)
Quarter: 2022Q4

REPORT INFORMATION
  Report Type: Spontaneous
  Country: US (occurrence: US)
  Receive Date: 20221020
  Receipt Date: 20221020
  Transmission Date: 20230112
  Serious: Yes (Hospitalization)
  Sender: FDA-Public Use
  Company Number: US-ALKERMES INC.-ALK-2022-005038

PATIENT
  Sex: Male

DRUGS (1)
  1. VIVITROL [Suspect]
     Active Substance: NALTREXONE
     Indication: Product used for unknown indication
     Dosage: 380 MILLIGRAM, QMO
     Route: 030

REACTIONS (18)
  - Poisoning [Unknown]
  - Hypersexuality [Unknown]
  - Proctalgia [Unknown]
  - Tobacco user [Unknown]
  - Epinephrine increased [Unknown]
  - Dysuria [Unknown]
  - Hallucination [Unknown]
  - Anal haemorrhage [Unknown]
  - Feeling cold [Unknown]
  - Muscular weakness [Unknown]
  - Ocular hyperaemia [Unknown]
  - Feeling abnormal [Unknown]
  - Swelling [Unknown]
  - Alcohol abuse [Unknown]
  - Decreased appetite [Unknown]
  - Hyperhidrosis [Unknown]
  - Weight decreased [Unknown]
  - Frequent bowel movements [Unknown]
